FAERS Safety Report 12681660 (Version 3)
Quarter: 2016Q3

REPORT INFORMATION
  Report Type: Spontaneous
  Country: US (occurrence: US)
  Receive Date: 20160824
  Receipt Date: 20160928
  Transmission Date: 20161109
  Serious: Yes (Other)
  Sender: FDA-Public Use
  Company Number: US-SAOL THERAPEUTICS-2016SAO00487

PATIENT
  Sex: Male
  Weight: 47.62 kg

DRUGS (5)
  1. LORATADINE. [Concomitant]
     Active Substance: LORATADINE
     Dosage: 10 MG, UNK
     Route: 048
  2. TEGRETOL [Concomitant]
     Active Substance: CARBAMAZEPINE
     Dosage: 200 MG, 2X/DAY
     Route: 048
  3. GABLOFEN [Suspect]
     Active Substance: BACLOFEN
     Dosage: 781 ?G/DAY
     Route: 037
  4. NAPROXEN. [Concomitant]
     Active Substance: NAPROXEN
     Dosage: 2 TSP, AS NEEDED
     Route: 048
  5. DULCOLAX NOS [Concomitant]
     Active Substance: BISACODYL OR DOCUSATE SODIUM
     Dosage: 1 DOSAGE UNITS, EVERY 48 HOURS
     Route: 054

REACTIONS (4)
  - Device dislocation [Unknown]
  - Scoliosis [Unknown]
  - Implant site scar [Unknown]
  - Medical device site erosion [Unknown]

NARRATIVE: CASE EVENT DATE: 2016
